FAERS Safety Report 9369763 (Version 1)
Quarter: 2013Q2

REPORT INFORMATION
  Report Type: Spontaneous
  Country: US (occurrence: None)
  Receive Date: 20130621
  Receipt Date: 20130621
  Transmission Date: 20140414
  Serious: Yes (Hospitalization)
  Sender: FDA-Public Use
  Company Number: TPA2013A05328

PATIENT
  Sex: Male

DRUGS (1)
  1. PIOGLITAZONE HYDROCHLORIDE CODE NOT BROKEN (PIOGLITAZONE HYDROCHLORIDE) [Suspect]
     Indication: CARDIOVASCULAR EVENT PROPHYLAXIS

REACTIONS (3)
  - Fall [None]
  - Femur fracture [None]
  - Fracture displacement [None]
